FAERS Safety Report 20651487 (Version 4)
Quarter: 2023Q4

REPORT INFORMATION
  Report Type: Spontaneous
  Country: AR (occurrence: AR)
  Receive Date: 20220330
  Receipt Date: 20231004
  Transmission Date: 20240109
  Serious: Yes (Death, Hospitalization, Other)
  Sender: FDA-Public Use
  Company Number: AR-BRISTOL-MYERS SQUIBB COMPANY-2022-010532

PATIENT
  Sex: Male

DRUGS (1)
  1. REVLIMID [Suspect]
     Active Substance: LENALIDOMIDE
     Indication: Product used for unknown indication
     Dosage: DOSE : 15MG (AS REPORTED);     FREQ : INFORMATION UNAVAILABLE

REACTIONS (3)
  - Cerebral haemorrhage [Fatal]
  - Malignant neoplasm progression [Unknown]
  - Therapy non-responder [Unknown]
